FAERS Safety Report 4433434-X (Version None)
Quarter: 2004Q3

REPORT INFORMATION
  Report Type: 
  Country: None (occurrence: None)
  Receive Date: 20040824
  Receipt Date: 20040811
  Transmission Date: 20050211
  Serious: Yes (Other)
  Sender: FDA-Public Use
  Company Number: SUSI-2004-00484

PATIENT
  Age: 8 Year
  Sex: Male

DRUGS (1)
  1. ADDERALL(AMPHETAMINE ASPARTATE,AMPHETAMINE SULFATE,DEXTROAMPHETAMINE S [Suspect]
     Dosage: ORAL
     Route: 048

REACTIONS (1)
  - CONVULSION [None]
